FAERS Safety Report 16795248 (Version 4)
Quarter: 2019Q4

REPORT INFORMATION
  Report Type: Report from Study
  Country: JP (occurrence: JP)
  Receive Date: 20190911
  Receipt Date: 20191224
  Transmission Date: 20200122
  Serious: Yes (Hospitalization, Other)
  Sender: FDA-Public Use
  Company Number: JP-ASTRAZENECA-2019SF06523

PATIENT
  Age: 21591 Day
  Sex: Female

DRUGS (38)
  1. DURVALUMAB. [Suspect]
     Active Substance: DURVALUMAB
     Indication: OVARIAN CANCER
     Dosage: 1120 MG Q3W FROM DAY 1 OF CYCLE 2 FOR A TOTAL OF 15 MONTHS OF TOTAL TREATMENT
     Route: 042
     Dates: start: 20190417, end: 20190417
  2. BEVACIZUMAB. [Concomitant]
     Active Substance: BEVACIZUMAB
     Indication: OVARIAN CANCER
     Dosage: 970.0MG/KG ONCE/SINGLE ADMINISTRATION
     Route: 065
     Dates: start: 20190703, end: 20190703
  3. CARBOPLATIN. [Concomitant]
     Active Substance: CARBOPLATIN
     Indication: OVARIAN CANCER
     Dosage: 652.0MG ONCE/SINGLE ADMINISTRATION
     Route: 065
     Dates: start: 20190327, end: 20190327
  4. PACLITAXEL. [Concomitant]
     Active Substance: PACLITAXEL
     Indication: OVARIAN CANCER
     Dosage: 295.0MG ONCE/SINGLE ADMINISTRATION
     Route: 065
     Dates: start: 20190306, end: 20190306
  5. BEVACIZUMAB. [Concomitant]
     Active Substance: BEVACIZUMAB
     Indication: OVARIAN CANCER
     Dosage: 900.0MG/KG ONCE/SINGLE ADMINISTRATION
     Route: 065
     Dates: start: 20191010, end: 20191010
  6. ALOSENN [Concomitant]
     Indication: CONSTIPATION
     Route: 048
     Dates: start: 20190308
  7. ZOLPIDEM TARTRATE. [Concomitant]
     Active Substance: ZOLPIDEM TARTRATE
     Indication: INSOMNIA
     Route: 048
     Dates: start: 20190520
  8. SOLDEM 3A [Concomitant]
     Active Substance: CARBOHYDRATES\POTASSIUM CHLORIDE\SODIUM CHLORIDE\SODIUM LACTATE
     Indication: FLUID REPLACEMENT
     Route: 042
     Dates: start: 20190307
  9. DURVALUMAB. [Suspect]
     Active Substance: DURVALUMAB
     Indication: OVARIAN CANCER
     Dosage: 1120 MG Q3W FROM DAY 1 OF CYCLE 2 FOR A TOTAL OF 15 MONTHS OF TOTAL TREATMENT
     Route: 042
     Dates: start: 20190327, end: 20190327
  10. BEVACIZUMAB. [Concomitant]
     Active Substance: BEVACIZUMAB
     Indication: OVARIAN CANCER
     Dosage: 970.0MG ONCE/SINGLE ADMINISTRATION
     Route: 065
     Dates: start: 20190612, end: 20190612
  11. BISONO [Concomitant]
     Active Substance: BISOPROLOL
     Indication: HYPERTHYROIDISM
     Route: 062
     Dates: start: 20190530
  12. DURVALUMAB. [Suspect]
     Active Substance: DURVALUMAB
     Indication: OVARIAN CANCER
     Dosage: 1120 MG Q3W FROM DAY 1 OF CYCLE 2 FOR A TOTAL OF 15 MONTHS OF TOTAL TREATMENT
     Route: 042
     Dates: start: 20190703, end: 20190703
  13. BEVACIZUMAB. [Concomitant]
     Active Substance: BEVACIZUMAB
     Indication: OVARIAN CANCER
     Dosage: 970.0MG ONCE/SINGLE ADMINISTRATION
     Route: 065
     Dates: start: 20190327, end: 20190327
  14. CARBOPLATIN. [Concomitant]
     Active Substance: CARBOPLATIN
     Indication: OVARIAN CANCER
     Dosage: 652.0MG ONCE/SINGLE ADMINISTRATION
     Route: 065
     Dates: start: 20190306, end: 20190306
  15. CARBOPLATIN. [Concomitant]
     Active Substance: CARBOPLATIN
     Indication: OVARIAN CANCER
     Dosage: 652.0MG ONCE/SINGLE ADMINISTRATION
     Route: 065
     Dates: start: 20190703, end: 20190703
  16. LOXOPROFEN [Concomitant]
     Active Substance: LOXOPROFEN
     Indication: HEADACHE
     Route: 048
     Dates: start: 20190329
  17. SOLACET F [Concomitant]
     Active Substance: CALCIUM CHLORIDE\POTASSIUM CHLORIDE\SODIUM ACETATE\SODIUM CHLORIDE
     Indication: FLUID REPLACEMENT
     Route: 042
     Dates: start: 20190306
  18. SOLDEM 3A [Concomitant]
     Active Substance: CARBOHYDRATES\POTASSIUM CHLORIDE\SODIUM CHLORIDE\SODIUM LACTATE
     Indication: FLUID REPLACEMENT
     Route: 042
     Dates: start: 20190513, end: 20190514
  19. PACLITAXEL. [Concomitant]
     Active Substance: PACLITAXEL
     Indication: OVARIAN CANCER
     Dosage: 295.0MG ONCE/SINGLE ADMINISTRATION
     Route: 065
     Dates: start: 20190417, end: 20190417
  20. GRANISETRON [Concomitant]
     Active Substance: GRANISETRON
     Indication: PREMEDICATION
     Route: 042
     Dates: start: 20190306
  21. RANITIDINE. [Concomitant]
     Active Substance: RANITIDINE
     Indication: PREMEDICATION
     Route: 042
     Dates: start: 20190306
  22. SOLDEM 3A [Concomitant]
     Active Substance: CARBOHYDRATES\POTASSIUM CHLORIDE\SODIUM CHLORIDE\SODIUM LACTATE
     Indication: FLUID REPLACEMENT
     Route: 042
     Dates: start: 20190515, end: 20190515
  23. NAUZELIN [Concomitant]
     Active Substance: DOMPERIDONE
     Indication: CONSTIPATION
     Route: 048
  24. OLAPARIB. [Suspect]
     Active Substance: OLAPARIB
     Indication: OVARIAN CANCER
     Route: 048
  25. PACLITAXEL. [Concomitant]
     Active Substance: PACLITAXEL
     Indication: OVARIAN CANCER
     Dosage: 295.0MG ONCE/SINGLE ADMINISTRATION
     Route: 065
     Dates: start: 20190703, end: 20190703
  26. NERIZA [Concomitant]
     Indication: HAEMORRHOIDS
     Dosage: 1 APPLICATION, DAILY
     Route: 054
     Dates: start: 20190417
  27. POLARAMINE [Concomitant]
     Active Substance: DEXCHLORPHENIRAMINE MALEATE
     Indication: PREMEDICATION
     Route: 042
     Dates: start: 20190306
  28. DEXART [Concomitant]
     Active Substance: DEXAMETHASONE SODIUM PHOSPHATE
     Indication: PREMEDICATION
     Route: 042
     Dates: start: 20190306
  29. MAGNESIUM OXIDE. [Concomitant]
     Active Substance: MAGNESIUM OXIDE
     Indication: CONSTIPATION
     Route: 048
     Dates: start: 20190305
  30. CARBOPLATIN. [Concomitant]
     Active Substance: CARBOPLATIN
     Indication: OVARIAN CANCER
     Dosage: 652.0MG ONCE/SINGLE ADMINISTRATION
     Route: 065
     Dates: start: 20190417, end: 20190417
  31. CARVEDILOL. [Concomitant]
     Active Substance: CARVEDILOL
     Indication: HYPERTHYROIDISM
     Route: 048
     Dates: start: 20190607
  32. DURVALUMAB. [Suspect]
     Active Substance: DURVALUMAB
     Indication: OVARIAN CANCER
     Dosage: 1120 MG Q3W FROM DAY 1 OF CYCLE 2 FOR A TOTAL OF 15 MONTHS OF TOTAL TREATMENT
     Route: 042
     Dates: start: 20190612, end: 20190612
  33. CARBOPLATIN. [Concomitant]
     Active Substance: CARBOPLATIN
     Indication: OVARIAN CANCER
     Dosage: 652.0MG ONCE/SINGLE ADMINISTRATION
     Route: 065
     Dates: start: 20190612, end: 20190612
  34. PACLITAXEL. [Concomitant]
     Active Substance: PACLITAXEL
     Indication: OVARIAN CANCER
     Dosage: 295.0MG ONCE/SINGLE ADMINISTRATION
     Route: 065
     Dates: start: 20190327, end: 20190327
  35. PACLITAXEL. [Concomitant]
     Active Substance: PACLITAXEL
     Indication: OVARIAN CANCER
     Dosage: 295.0MG ONCE/SINGLE ADMINISTRATION
     Route: 065
     Dates: start: 20190612, end: 20190612
  36. MAGNESIUM OXIDE. [Concomitant]
     Active Substance: MAGNESIUM OXIDE
     Indication: CONSTIPATION
     Route: 048
     Dates: start: 20190305
  37. LOXOPROFEN [Concomitant]
     Active Substance: LOXOPROFEN
     Indication: HEADACHE
     Route: 048
     Dates: start: 20190517, end: 20190523
  38. OMNIPAQUE [Concomitant]
     Active Substance: IOHEXOL
     Indication: SCAN WITH CONTRAST
     Route: 042
     Dates: start: 20190301

REACTIONS (2)
  - Drug-induced liver injury [Recovered/Resolved]
  - Hepatic function abnormal [Not Recovered/Not Resolved]

NARRATIVE: CASE EVENT DATE: 20190711
